FAERS Safety Report 4493947-1 (Version None)
Quarter: 2004Q4

REPORT INFORMATION
  Report Type: 
  Country: None (occurrence: None)
  Receive Date: 20041105
  Receipt Date: 20041019
  Transmission Date: 20050328
  Serious: Yes (Hospitalization, Other)
  Sender: FDA-Public Use
  Company Number: PHEH2004US11273

PATIENT
  Age: 77 Year
  Sex: Female

DRUGS (14)
  1. ZELNORM [Suspect]
     Indication: CONSTIPATION
     Dosage: 6 MG, BID
     Route: 048
     Dates: start: 20040929, end: 20041006
  2. SYNTHROID [Concomitant]
     Indication: THYROID DISORDER
     Dosage: .1 MG, QD
  3. PLAVIX [Concomitant]
     Indication: CEREBROVASCULAR ACCIDENT
     Dosage: 75 MG, QD
  4. NEURONTIN [Concomitant]
     Indication: NEUROPATHY
     Dosage: 300 MG, TID
  5. TOPROL-XL [Concomitant]
     Dosage: 50 MG, QD
  6. AMIODARONE HCL [Concomitant]
     Indication: CARDIAC DISORDER
     Dosage: 200 MG, BID
  7. FUROSEMIDE [Concomitant]
     Dosage: 40 MG, QD
  8. ALTACE [Concomitant]
     Indication: HYPERTENSION
     Dosage: 5 MG, QD
  9. BEXTRA [Concomitant]
     Dosage: 10 MG, QD
  10. POTASSIUM [Concomitant]
     Dosage: 20 MEQ, QD
  11. LIPITOR [Concomitant]
     Indication: BLOOD CHOLESTEROL INCREASED
  12. FOSAMAX [Concomitant]
     Indication: ANTACID THERAPY
  13. HYDROCODONE [Concomitant]
     Indication: PAIN
  14. LAXATIVES [Concomitant]
     Dates: start: 20041006

REACTIONS (15)
  - ABDOMINAL PAIN [None]
  - ABDOMINAL TENDERNESS [None]
  - ASTHENIA [None]
  - BIOPSY COLON ABNORMAL [None]
  - BODY TEMPERATURE DECREASED [None]
  - COLITIS ISCHAEMIC [None]
  - COLONOSCOPY ABNORMAL [None]
  - CONSTIPATION [None]
  - DIARRHOEA [None]
  - DIVERTICULUM [None]
  - DRUG INEFFECTIVE [None]
  - HAEMATOCHEZIA [None]
  - HAEMATOCRIT DECREASED [None]
  - INTESTINAL ULCER [None]
  - OXYGEN SATURATION DECREASED [None]
